FAERS Safety Report 9915874 (Version 1)
Quarter: 2014Q1

REPORT INFORMATION
  Report Type: Spontaneous
  Country: FR (occurrence: None)
  Receive Date: 20140218
  Receipt Date: 20140218
  Transmission Date: 20141002
  Serious: Yes (Hospitalization)
  Sender: FDA-Public Use
  Company Number: 7268485

PATIENT
  Age: 66 Year
  Sex: Female

DRUGS (3)
  1. LEVOTHYROX [Suspect]
     Indication: PRODUCT USED FOR UNKNOWN INDICATION
     Route: 048
     Dates: start: 20131105, end: 20131105
  2. PEGINTERFERON ALFA-2A [Suspect]
     Indication: PRODUCT USED FOR UNKNOWN INDICATION
     Route: 048
     Dates: start: 201202
  3. RIBAVIRIN [Suspect]
     Indication: PRODUCT USED FOR UNKNOWN INDICATION
     Dates: start: 201202

REACTIONS (5)
  - Deep vein thrombosis [None]
  - Dyspnoea [None]
  - Palpitations [None]
  - Oedema peripheral [None]
  - Hepatic pain [None]
